FAERS Safety Report 7483548-5 (Version None)
Quarter: 2011Q2

REPORT INFORMATION
  Report Type: 
  Country: None (occurrence: None)
  Receive Date: 20110517
  Receipt Date: 20110504
  Transmission Date: 20111010
  Serious: Yes (Hospitalization)
  Sender: FDA-Public Use
  Company Number: US-CELGENEUS-163-21880-11050400

PATIENT
  Sex: Male
  Weight: 73.73 kg

DRUGS (20)
  1. POTASSIUM CHLORIDE [Concomitant]
     Dosage: 20 MILLIEQUIVALENTS
     Route: 065
  2. ZYLOPRIM [Concomitant]
     Dosage: 300 MILLIGRAM
     Route: 065
  3. ASPIRIN [Concomitant]
     Dosage: 81 MILLIGRAM
     Route: 065
  4. SIMVASTATIN [Concomitant]
     Dosage: 40 MILLIGRAM
     Route: 065
  5. ZOFRAN [Concomitant]
     Indication: VOMITING
  6. OMEPRAZOLE [Concomitant]
     Dosage: 40 MILLIGRAM
     Route: 065
  7. RED BLOOD CELLS [Concomitant]
     Dosage: SEVERAL UNITS
     Route: 051
     Dates: start: 20110401, end: 20110401
  8. FRESH FROZEN PLASMA [Concomitant]
     Route: 051
     Dates: start: 20110401, end: 20110401
  9. ZOFRAN [Concomitant]
     Indication: NAUSEA
     Dosage: 4 MILLIGRAM
     Route: 051
  10. ACETAMINOPHEN [Concomitant]
     Dosage: 650 MILLIGRAM
     Route: 065
  11. PLATELETS [Concomitant]
     Dosage: 2 UNITS
     Route: 051
     Dates: start: 20110401, end: 20110401
  12. REVLIMID [Suspect]
     Dosage: 10 MILLIGRAM
     Route: 048
     Dates: start: 20110402, end: 20110415
  13. ZOCOR [Concomitant]
     Dosage: 40 MILLIGRAM
     Route: 065
  14. ALLOPURINOL [Concomitant]
     Dosage: 300 MILLIGRAM
     Route: 065
  15. PEPCID [Concomitant]
     Dosage: 20 MILLIGRAM
     Route: 051
  16. NITROGLYCERIN [Concomitant]
     Route: 060
  17. NIASPAN [Concomitant]
     Dosage: 500 MILLIGRAM
     Route: 065
  18. LASIX [Concomitant]
     Dosage: 40 MILLIGRAM
     Route: 065
  19. IRON SULFATETHIAMIN COMPOUND TAB [Concomitant]
     Dosage: 325 MILLIGRAM
     Route: 065
  20. HYDREA [Concomitant]
     Dosage: 500 MILLIGRAM
     Route: 065

REACTIONS (3)
  - SPLENIC RUPTURE [None]
  - PLATELET COUNT DECREASED [None]
  - SPLENOMEGALY [None]
